FAERS Safety Report 14271447 (Version 2)
Quarter: 2017Q4

REPORT INFORMATION
  Report Type: Spontaneous
  Country: US (occurrence: US)
  Receive Date: 20171211
  Receipt Date: 20171227
  Transmission Date: 20180321
  Serious: Yes (Hospitalization, Other)
  Sender: FDA-Public Use
  Company Number: US-BAUSCH-BL-2017-032589

PATIENT
  Age: 60 Year
  Sex: Male

DRUGS (1)
  1. PROVENGE [Suspect]
     Active Substance: SIPULEUCEL-T
     Indication: PROSTATE CANCER
     Route: 042
     Dates: start: 20171124, end: 20171124

REACTIONS (3)
  - Device related infection [Unknown]
  - Device malfunction [Unknown]
  - Vomiting [Unknown]

NARRATIVE: CASE EVENT DATE: 201711
